FAERS Safety Report 17956289 (Version 1)
Quarter: 2020Q2

REPORT INFORMATION
  Report Type: Spontaneous
  Country: PL (occurrence: PL)
  Receive Date: 20200629
  Receipt Date: 20200629
  Transmission Date: 20200714
  Serious: Yes (Hospitalization)
  Sender: FDA-Public Use
  Company Number: PL-BAYER-2020-121983

PATIENT
  Age: 42 Year
  Sex: Female

DRUGS (12)
  1. DULOXETINE. [Interacting]
     Active Substance: DULOXETINE
     Dosage: 90 MG, QD
  2. CIPROBAY 500 MG [Suspect]
     Active Substance: CIPROFLOXACIN
     Indication: DYSURIA
     Dosage: 500 MG, BID
  3. QUETIAPINE. [Concomitant]
     Active Substance: QUETIAPINE
     Dosage: 25 MG, HS
  4. OLANZAPINE. [Interacting]
     Active Substance: OLANZAPINE
     Dosage: 5 MG, QD
  5. PERINDOPRIL [Concomitant]
     Active Substance: PERINDOPRIL
     Indication: HYPERTENSION
     Dosage: 10 MG
  6. METOCLOPRAMIDE. [Concomitant]
     Active Substance: METOCLOPRAMIDE
     Dosage: UNK
  7. MORPHINE [Concomitant]
     Active Substance: MORPHINE
     Dosage: 80 MG, BID
  8. PREGABALIN. [Concomitant]
     Active Substance: PREGABALIN
     Dosage: 300 MG, QD
  9. DEXAMETHASONE. [Concomitant]
     Active Substance: DEXAMETHASONE
     Dosage: UNK
  10. OLANZAPINE. [Interacting]
     Active Substance: OLANZAPINE
     Dosage: 10 UNK
  11. AMLODIPINE [Interacting]
     Active Substance: AMLODIPINE BESYLATE
     Indication: HYPERTENSION
     Dosage: 10 MG
  12. DIMENHYDRINATE. [Concomitant]
     Active Substance: DIMENHYDRINATE
     Dosage: UNK

REACTIONS (7)
  - Vomiting [None]
  - Drug interaction [None]
  - Tinnitus [None]
  - Anxiety [None]
  - Polydipsia [None]
  - Urinary retention [None]
  - Paraesthesia [None]
